FAERS Safety Report 15127362 (Version 1)
Quarter: 2018Q3

REPORT INFORMATION
  Report Type: Spontaneous
  Country: IT (occurrence: IT)
  Receive Date: 20180710
  Receipt Date: 20180710
  Transmission Date: 20181010
  Serious: Yes (Other)
  Sender: FDA-Public Use
  Company Number: IT-MYLANLABS-2018M1048344

PATIENT
  Age: 32 Year
  Sex: Female

DRUGS (2)
  1. BROMOCRIPTINE [Suspect]
     Active Substance: BROMOCRIPTINE
     Indication: GALACTORRHOEA
     Route: 048
     Dates: start: 20170901, end: 20170901
  2. EUTIROX [Concomitant]
     Active Substance: LEVOTHYROXINE SODIUM
     Indication: PRODUCT USED FOR UNKNOWN INDICATION

REACTIONS (3)
  - Presyncope [Unknown]
  - Breast discomfort [Unknown]
  - Breast pain [Unknown]

NARRATIVE: CASE EVENT DATE: 20170902
